FAERS Safety Report 7366789-7 (Version None)
Quarter: 2011Q1

REPORT INFORMATION
  Report Type: 
  Country: None (occurrence: None)
  Receive Date: 20110322
  Receipt Date: 20110314
  Transmission Date: 20110831
  Serious: Yes (Hospitalization)
  Sender: FDA-Public Use
  Company Number: ES-ROCHE-764695

PATIENT
  Sex: Male

DRUGS (3)
  1. MYCOPHENOLATE MOFETIL [Suspect]
     Route: 065
     Dates: start: 20061110
  2. BELATACEPT [Suspect]
     Dosage: LESS INTENSIVE DOSING REGIMEN
     Route: 042
     Dates: start: 20061110
  3. PREDNISONE [Suspect]
     Route: 065
     Dates: start: 20061110

REACTIONS (1)
  - BURSITIS [None]
